FAERS Safety Report 6207546-4 (Version None)
Quarter: 2009Q2

REPORT INFORMATION
  Report Type: 
  Country: None (occurrence: None)
  Receive Date: 20090528
  Receipt Date: 20090520
  Transmission Date: 20091009
  Serious: Yes (Hospitalization)
  Sender: FDA-Public Use
  Company Number: PHHO2009US06414

PATIENT
  Sex: Female
  Weight: 66.36 kg

DRUGS (10)
  1. ZOLEDRONIC ACID [Suspect]
     Indication: METASTASES TO BONE
     Dosage: 4MG
     Route: 042
     Dates: start: 20080110
  2. HERCEPTIN [Suspect]
  3. DECADRON [Suspect]
  4. SAMARIUM [153 SM] LEXIDRONAM PENTASODIUM [Concomitant]
     Dosage: UNK
     Dates: start: 20080117
  5. VITAMIN D [Concomitant]
  6. CALCIUM [Concomitant]
  7. NAVELBINE [Concomitant]
  8. OS-CAL [Concomitant]
  9. NEXIUM [Concomitant]
  10. OXYCODONE HCL [Concomitant]

REACTIONS (7)
  - BACTERAEMIA [None]
  - EMPYEMA [None]
  - FEBRILE NEUTROPENIA [None]
  - FLAVOBACTERIUM INFECTION [None]
  - PLEURAL DECORTICATION [None]
  - PLEURAL EFFUSION [None]
  - PYREXIA [None]
